FAERS Safety Report 7578339-0 (Version None)
Quarter: 2011Q2

REPORT INFORMATION
  Report Type: 
  Country: None (occurrence: None)
  Receive Date: 20110628
  Receipt Date: 20110617
  Transmission Date: 20111010
  Serious: Yes (Life-Threatening)
  Sender: FDA-Public Use
  Company Number: US-BAXTER-2011BH020180

PATIENT
  Age: 74 Year
  Sex: Female
  Weight: 86 kg

DRUGS (12)
  1. PRILOSEC [Concomitant]
     Indication: GASTROOESOPHAGEAL REFLUX DISEASE
     Route: 048
  2. WARFARIN SODIUM [Concomitant]
     Indication: SURGERY
     Route: 048
     Dates: start: 20110615, end: 20110615
  3. REGLAN [Suspect]
     Indication: NAUSEA
     Route: 042
     Dates: start: 20110616, end: 20110616
  4. PROMETHAZINE HCL [Suspect]
     Indication: NAUSEA
     Route: 042
     Dates: start: 20110616, end: 20110616
  5. ZESTRIL [Concomitant]
     Indication: PRODUCT USED FOR UNKNOWN INDICATION
     Route: 048
  6. VITAMIN B-12 [Concomitant]
     Indication: PRODUCT USED FOR UNKNOWN INDICATION
     Route: 048
  7. WARFARIN SODIUM [Concomitant]
     Route: 048
     Dates: start: 20110616, end: 20110616
  8. NIFEREX [Concomitant]
     Indication: MINERAL SUPPLEMENTATION
     Route: 048
  9. SURFAK [Concomitant]
     Indication: PRODUCT USED FOR UNKNOWN INDICATION
     Route: 048
  10. SODIUM CHLORIDE 0.9% IN PLASTIC CONTAINER [Suspect]
     Indication: MEDICATION DILUTION
     Route: 042
     Dates: start: 20110616, end: 20110616
  11. ASPIRIN [Concomitant]
     Indication: PRODUCT USED FOR UNKNOWN INDICATION
     Route: 048
  12. LOPID [Concomitant]
     Indication: PRODUCT USED FOR UNKNOWN INDICATION
     Route: 048

REACTIONS (4)
  - RESPIRATORY RATE DECREASED [None]
  - UNRESPONSIVE TO STIMULI [None]
  - DRUG INTERACTION [None]
  - BLOOD PRESSURE DECREASED [None]
